FAERS Safety Report 6170291-8 (Version None)
Quarter: 2009Q2

REPORT INFORMATION
  Report Type: 
  Country: None (occurrence: None)
  Receive Date: 20090428
  Receipt Date: 20090417
  Transmission Date: 20091009
  Serious: Yes (Other)
  Sender: FDA-Public Use
  Company Number: AT-PFIZER INC-2009177948

PATIENT

DRUGS (1)
  1. DALACIN [Suspect]
     Indication: TOOTH DISORDER
     Dosage: 300 MG, 3X/DAY
     Route: 048
     Dates: start: 20090201

REACTIONS (3)
  - DYSGEUSIA [None]
  - GASTROINTESTINAL PAIN [None]
  - VISUAL IMPAIRMENT [None]
